FAERS Safety Report 8493473-9 (Version None)
Quarter: 2012Q2

REPORT INFORMATION
  Report Type: 
  Country: None (occurrence: None)
  Receive Date: 20120402
  Receipt Date: 20081206
  Transmission Date: 20120825
  Serious: Yes (Other)
  Sender: FDA-Public Use
  Company Number: PHEH2008US11637

PATIENT

DRUGS (1)
  1. EXFORGE [Suspect]

REACTIONS (3)
  - PRURITUS [None]
  - SWELLING FACE [None]
  - EYE SWELLING [None]
